FAERS Safety Report 18607402 (Version 2)
Quarter: 2021Q2

REPORT INFORMATION
  Report Type: Spontaneous
  Country: US (occurrence: US)
  Receive Date: 20201211
  Receipt Date: 20210610
  Transmission Date: 20210717
  Serious: No
  Sender: FDA-Public Use
  Company Number: US-PFIZER INC-2020489021

PATIENT
  Age: 74 Year
  Sex: Female
  Weight: 42.64 kg

DRUGS (3)
  1. XELJANZ XR [Suspect]
     Active Substance: TOFACITINIB CITRATE
     Indication: RHEUMATOID ARTHRITIS
     Dosage: 11 MG, ONCE DAILY AT NIGHT (11 WITH WATER ONCE A DAY AT NIGHT)
     Route: 048
     Dates: end: 20210326
  2. XELJANZ XR [Suspect]
     Active Substance: TOFACITINIB CITRATE
     Indication: FIBROMYALGIA
  3. PREDNISONE. [Concomitant]
     Active Substance: PREDNISONE
     Indication: RHEUMATOID ARTHRITIS
     Dosage: 5 MG, 1X/DAY (MORNING)

REACTIONS (6)
  - Blood count abnormal [Not Recovered/Not Resolved]
  - Lymphocyte count decreased [Not Recovered/Not Resolved]
  - Abdominal discomfort [Unknown]
  - White blood cell count decreased [Unknown]
  - Diarrhoea [Not Recovered/Not Resolved]
  - Vital functions abnormal [Unknown]

NARRATIVE: CASE EVENT DATE: 20201222
